FAERS Safety Report 5122110-6 (Version None)
Quarter: 2006Q4

REPORT INFORMATION
  Report Type: 
  Country: None (occurrence: None)
  Receive Date: 20061004
  Receipt Date: 20061004
  Transmission Date: 20070319
  Serious: No
  Sender: FDA-Public Use
  Company Number: None

PATIENT
  Sex: Female
  Weight: 54.4316 kg

DRUGS (3)
  1. DAYTRANA [Suspect]
     Indication: ATTENTION DEFICIT/HYPERACTIVITY DISORDER
     Dosage: 20 MG DAILY TRANSDERMAL
     Route: 062
     Dates: start: 20060721, end: 20060924
  2. ORAL CONTRACEPTIVE [Concomitant]
  3. BUPROPION HCL [Concomitant]

REACTIONS (5)
  - APPLICATION SITE ERYTHEMA [None]
  - DRY SKIN [None]
  - ERYTHEMA [None]
  - PRURITUS [None]
  - RASH [None]
